FAERS Safety Report 18606733 (Version 1)
Quarter: 2020Q4

REPORT INFORMATION
  Report Type: Report from Study
  Country: KR (occurrence: KR)
  Receive Date: 20201211
  Receipt Date: 20201211
  Transmission Date: 20210114
  Serious: Yes (Hospitalization)
  Sender: FDA-Public Use
  Company Number: KR-TAKEDA-KR202003793

PATIENT

DRUGS (30)
  1. PEGYLATED COAGULATION FACTOR VIII [Suspect]
     Active Substance: ANTIHEMOPHILIC FACTOR, PEGYLATED (MW 20000) HUMAN SEQUENCE RECOMBINANT
     Indication: FACTOR VIII DEFICIENCY
     Dosage: 2165 INTERNATIONAL UNIT, ONE DOSE
     Route: 042
     Dates: start: 20190821, end: 20190821
  2. PEGYLATED COAGULATION FACTOR VIII [Suspect]
     Active Substance: ANTIHEMOPHILIC FACTOR, PEGYLATED (MW 20000) HUMAN SEQUENCE RECOMBINANT
     Dosage: 2165 INTERNATIONAL UNIT, 1X/DAY:QD
     Route: 042
     Dates: start: 20190822, end: 20190824
  3. PEGYLATED COAGULATION FACTOR VIII [Suspect]
     Active Substance: ANTIHEMOPHILIC FACTOR, PEGYLATED (MW 20000) HUMAN SEQUENCE RECOMBINANT
     Dosage: 1586 INTERNATIONAL UNIT, 1X/DAY:QD
     Route: 042
     Dates: start: 20190826, end: 20190826
  4. PEGYLATED COAGULATION FACTOR VIII [Suspect]
     Active Substance: ANTIHEMOPHILIC FACTOR, PEGYLATED (MW 20000) HUMAN SEQUENCE RECOMBINANT
     Dosage: 2165 INTERNATIONAL UNIT, 1X/DAY:QD
     Route: 042
     Dates: start: 20190828, end: 20190828
  5. PEGYLATED COAGULATION FACTOR VIII [Suspect]
     Active Substance: ANTIHEMOPHILIC FACTOR, PEGYLATED (MW 20000) HUMAN SEQUENCE RECOMBINANT
     Dosage: 2165 INTERNATIONAL UNIT, 1X/DAY:QD
     Route: 042
     Dates: start: 20190829, end: 20190829
  6. PEGYLATED COAGULATION FACTOR VIII [Suspect]
     Active Substance: ANTIHEMOPHILIC FACTOR, PEGYLATED (MW 20000) HUMAN SEQUENCE RECOMBINANT
     Dosage: 1586 INTERNATIONAL UNIT, 1X/DAY:QD
     Route: 042
     Dates: start: 20190821, end: 20190821
  7. PEGYLATED COAGULATION FACTOR VIII [Suspect]
     Active Substance: ANTIHEMOPHILIC FACTOR, PEGYLATED (MW 20000) HUMAN SEQUENCE RECOMBINANT
     Dosage: 4330 INTERNATIONAL UNIT, 1X/DAY:QD
     Route: 042
     Dates: start: 20190826, end: 20190826
  8. PEGYLATED COAGULATION FACTOR VIII [Suspect]
     Active Substance: ANTIHEMOPHILIC FACTOR, PEGYLATED (MW 20000) HUMAN SEQUENCE RECOMBINANT
     Dosage: 2165 INTERNATIONAL UNIT, 1X/DAY:QD
     Route: 042
     Dates: start: 20190828, end: 20190828
  9. PEGYLATED COAGULATION FACTOR VIII [Suspect]
     Active Substance: ANTIHEMOPHILIC FACTOR, PEGYLATED (MW 20000) HUMAN SEQUENCE RECOMBINANT
     Dosage: 1586 INTERNATIONAL UNIT, 1X/DAY:QD
     Route: 042
     Dates: start: 20190821, end: 20190821
  10. PEGYLATED COAGULATION FACTOR VIII [Suspect]
     Active Substance: ANTIHEMOPHILIC FACTOR, PEGYLATED (MW 20000) HUMAN SEQUENCE RECOMBINANT
     Dosage: 2165 INTERNATIONAL UNIT, 1X/DAY:QD
     Route: 042
     Dates: start: 20190822, end: 20190824
  11. PEGYLATED COAGULATION FACTOR VIII [Suspect]
     Active Substance: ANTIHEMOPHILIC FACTOR, PEGYLATED (MW 20000) HUMAN SEQUENCE RECOMBINANT
     Indication: FACTOR VIII DEFICIENCY
     Dosage: 2165 INTERNATIONAL UNIT, ONE DOSE
     Route: 042
     Dates: start: 20190821, end: 20190821
  12. PEGYLATED COAGULATION FACTOR VIII [Suspect]
     Active Substance: ANTIHEMOPHILIC FACTOR, PEGYLATED (MW 20000) HUMAN SEQUENCE RECOMBINANT
     Indication: FACTOR VIII DEFICIENCY
     Dosage: 2165 INTERNATIONAL UNIT, ONE DOSE
     Route: 042
     Dates: start: 20190821, end: 20190821
  13. PEGYLATED COAGULATION FACTOR VIII [Suspect]
     Active Substance: ANTIHEMOPHILIC FACTOR, PEGYLATED (MW 20000) HUMAN SEQUENCE RECOMBINANT
     Dosage: 1586 INTERNATIONAL UNIT, 1X/DAY:QD
     Route: 042
     Dates: start: 20190826, end: 20190826
  14. PEGYLATED COAGULATION FACTOR VIII [Suspect]
     Active Substance: ANTIHEMOPHILIC FACTOR, PEGYLATED (MW 20000) HUMAN SEQUENCE RECOMBINANT
     Dosage: 2165 INTERNATIONAL UNIT, 1X/DAY:QD
     Route: 042
     Dates: start: 20190829, end: 20190829
  15. PEGYLATED COAGULATION FACTOR VIII [Suspect]
     Active Substance: ANTIHEMOPHILIC FACTOR, PEGYLATED (MW 20000) HUMAN SEQUENCE RECOMBINANT
     Dosage: 2165 INTERNATIONAL UNIT, 1X/DAY:QD
     Route: 042
     Dates: start: 20190830, end: 20190830
  16. PEGYLATED COAGULATION FACTOR VIII [Suspect]
     Active Substance: ANTIHEMOPHILIC FACTOR, PEGYLATED (MW 20000) HUMAN SEQUENCE RECOMBINANT
     Dosage: 4330 INTERNATIONAL UNIT, 1X/DAY:QD
     Route: 042
     Dates: start: 20190826, end: 20190826
  17. PEGYLATED COAGULATION FACTOR VIII [Suspect]
     Active Substance: ANTIHEMOPHILIC FACTOR, PEGYLATED (MW 20000) HUMAN SEQUENCE RECOMBINANT
     Dosage: 1586 INTERNATIONAL UNIT, 1X/DAY:QD
     Route: 042
     Dates: start: 20190827, end: 20190828
  18. PEGYLATED COAGULATION FACTOR VIII [Suspect]
     Active Substance: ANTIHEMOPHILIC FACTOR, PEGYLATED (MW 20000) HUMAN SEQUENCE RECOMBINANT
     Dosage: 2165 INTERNATIONAL UNIT, 1X/DAY:QD
     Route: 042
     Dates: start: 20190828, end: 20190828
  19. PEGYLATED COAGULATION FACTOR VIII [Suspect]
     Active Substance: ANTIHEMOPHILIC FACTOR, PEGYLATED (MW 20000) HUMAN SEQUENCE RECOMBINANT
     Dosage: 2165 INTERNATIONAL UNIT, 1X/DAY:QD
     Route: 042
     Dates: start: 20190829, end: 20190829
  20. PEGYLATED COAGULATION FACTOR VIII [Suspect]
     Active Substance: ANTIHEMOPHILIC FACTOR, PEGYLATED (MW 20000) HUMAN SEQUENCE RECOMBINANT
     Dosage: 1586 INTERNATIONAL UNIT, 1X/DAY:QD
     Route: 042
     Dates: start: 20190821, end: 20190821
  21. PEGYLATED COAGULATION FACTOR VIII [Suspect]
     Active Substance: ANTIHEMOPHILIC FACTOR, PEGYLATED (MW 20000) HUMAN SEQUENCE RECOMBINANT
     Dosage: 2165 INTERNATIONAL UNIT, 1X/DAY:QD
     Route: 042
     Dates: start: 20190822, end: 20190824
  22. PEGYLATED COAGULATION FACTOR VIII [Suspect]
     Active Substance: ANTIHEMOPHILIC FACTOR, PEGYLATED (MW 20000) HUMAN SEQUENCE RECOMBINANT
     Dosage: 4330 INTERNATIONAL UNIT, 1X/DAY:QD
     Route: 042
     Dates: start: 20190826, end: 20190826
  23. PEGYLATED COAGULATION FACTOR VIII [Suspect]
     Active Substance: ANTIHEMOPHILIC FACTOR, PEGYLATED (MW 20000) HUMAN SEQUENCE RECOMBINANT
     Dosage: 2165 INTERNATIONAL UNIT, 1X/DAY:QD
     Route: 042
     Dates: start: 20190826, end: 20190826
  24. PEGYLATED COAGULATION FACTOR VIII [Suspect]
     Active Substance: ANTIHEMOPHILIC FACTOR, PEGYLATED (MW 20000) HUMAN SEQUENCE RECOMBINANT
     Dosage: 1586 INTERNATIONAL UNIT, 1X/DAY:QD
     Route: 042
     Dates: start: 20190827, end: 20190828
  25. PEGYLATED COAGULATION FACTOR VIII [Suspect]
     Active Substance: ANTIHEMOPHILIC FACTOR, PEGYLATED (MW 20000) HUMAN SEQUENCE RECOMBINANT
     Dosage: 1586 INTERNATIONAL UNIT, 1X/DAY:QD
     Route: 042
     Dates: start: 20190827, end: 20190828
  26. PEGYLATED COAGULATION FACTOR VIII [Suspect]
     Active Substance: ANTIHEMOPHILIC FACTOR, PEGYLATED (MW 20000) HUMAN SEQUENCE RECOMBINANT
     Dosage: 2165 INTERNATIONAL UNIT, 1X/DAY:QD
     Route: 042
     Dates: start: 20190830, end: 20190830
  27. PEGYLATED COAGULATION FACTOR VIII [Suspect]
     Active Substance: ANTIHEMOPHILIC FACTOR, PEGYLATED (MW 20000) HUMAN SEQUENCE RECOMBINANT
     Dosage: 2165 INTERNATIONAL UNIT, 1X/DAY:QD
     Route: 042
     Dates: start: 20190826, end: 20190826
  28. PEGYLATED COAGULATION FACTOR VIII [Suspect]
     Active Substance: ANTIHEMOPHILIC FACTOR, PEGYLATED (MW 20000) HUMAN SEQUENCE RECOMBINANT
     Dosage: 2165 INTERNATIONAL UNIT, 1X/DAY:QD
     Route: 042
     Dates: start: 20190826, end: 20190826
  29. PEGYLATED COAGULATION FACTOR VIII [Suspect]
     Active Substance: ANTIHEMOPHILIC FACTOR, PEGYLATED (MW 20000) HUMAN SEQUENCE RECOMBINANT
     Dosage: 1586 INTERNATIONAL UNIT, 1X/DAY:QD
     Route: 042
     Dates: start: 20190826, end: 20190826
  30. PEGYLATED COAGULATION FACTOR VIII [Suspect]
     Active Substance: ANTIHEMOPHILIC FACTOR, PEGYLATED (MW 20000) HUMAN SEQUENCE RECOMBINANT
     Dosage: 2165 INTERNATIONAL UNIT, 1X/DAY:QD
     Route: 042
     Dates: start: 20190830, end: 20190830

REACTIONS (1)
  - Haematochezia [Recovered/Resolved]

NARRATIVE: CASE EVENT DATE: 20190826
